FAERS Safety Report 9216496 (Version 1)
Quarter: 2013Q2

REPORT INFORMATION
  Report Type: Spontaneous
  Country: US (occurrence: US)
  Receive Date: 20130408
  Receipt Date: 20130408
  Transmission Date: 20140414
  Serious: Yes (Other)
  Sender: FDA-Public Use
  Company Number: US-ELI_LILLY_AND_COMPANY-US201109000811

PATIENT
  Sex: Female

DRUGS (2)
  1. FORTEO [Suspect]
     Dosage: UNK, UNKNOWN
     Route: 058
  2. FORTEO [Suspect]
     Dosage: UNK, UNKNOWN
     Route: 058

REACTIONS (11)
  - Syncope [Unknown]
  - Rib fracture [Unknown]
  - Tachycardia [Not Recovered/Not Resolved]
  - Injection site haemorrhage [Unknown]
  - Injection site swelling [Unknown]
  - Initial insomnia [Unknown]
  - Headache [Unknown]
  - Injection site bruising [Unknown]
  - Wrong technique in drug usage process [Unknown]
  - Urinary tract infection [Unknown]
  - Dehydration [Unknown]
